FAERS Safety Report 18514785 (Version 1)
Quarter: 2020Q4

REPORT INFORMATION
  Report Type: Spontaneous
  Country: US (occurrence: US)
  Receive Date: 20201117
  Receipt Date: 20201117
  Transmission Date: 20210114
  Serious: Yes (Hospitalization)
  Sender: FDA-Public Use
  Company Number: US-LEADINGPHARMA-US-2020LEALIT00162

PATIENT
  Age: 47 Year
  Sex: Male

DRUGS (4)
  1. VANCOMYCIN [Interacting]
     Active Substance: VANCOMYCIN
     Indication: BACTERIAL INFECTION
     Route: 042
  2. FUROSEMIDE TABLETS USP [Suspect]
     Active Substance: FUROSEMIDE
     Indication: OEDEMA PERIPHERAL
     Route: 048
  3. CEFTRIAXONE. [Interacting]
     Active Substance: CEFTRIAXONE
     Indication: BACTERIAL INFECTION
     Route: 042
  4. PENICILLIN-G [Interacting]
     Active Substance: PENICILLIN G
     Indication: BACTERIAL INFECTION
     Route: 042

REACTIONS (1)
  - Drug ineffective [Unknown]
